FAERS Safety Report 5207052-X (Version None)
Quarter: 2007Q1

REPORT INFORMATION
  Report Type: 
  Country: None (occurrence: None)
  Receive Date: 20070112
  Receipt Date: 20070111
  Transmission Date: 20070707
  Serious: Yes (Other)
  Sender: FDA-Public Use
  Company Number: SE-JNJFOC-20061202373

PATIENT
  Sex: Male

DRUGS (4)
  1. REMICADE [Suspect]
     Indication: PSORIATIC ARTHROPATHY
     Route: 042
  2. ALVEDON [Concomitant]
  3. BRUFEN [Concomitant]
  4. TRADOLAN [Concomitant]

REACTIONS (1)
  - HERPES SIMPLEX [None]
